FAERS Safety Report 7956005-7 (Version None)
Quarter: 2011Q4

REPORT INFORMATION
  Report Type: 
  Country: None (occurrence: None)
  Receive Date: 20111205
  Receipt Date: 20111129
  Transmission Date: 20120403
  Serious: Yes (Hospitalization, Other)
  Sender: FDA-Public Use
  Company Number: AU-AMGEN-AUSSP2011051552

PATIENT
  Age: 19 Year
  Sex: Female
  Weight: 113 kg

DRUGS (2)
  1. NEORECORMON [Concomitant]
     Indication: APLASTIC ANAEMIA
     Dosage: 5000 UNIT, QWK
     Route: 058
     Dates: start: 20110510, end: 20110710
  2. ARANESP [Suspect]
     Indication: APLASTIC ANAEMIA
     Dosage: 40 MUG, QWK
     Route: 058
     Dates: start: 20090521, end: 20110408

REACTIONS (6)
  - THROMBOCYTOPENIA [None]
  - APLASTIC ANAEMIA [None]
  - SPLENOMEGALY [None]
  - NON-NEUTRALISING ANTIBODIES POSITIVE [None]
  - APLASIA PURE RED CELL [None]
  - MENORRHAGIA [None]
